FAERS Safety Report 7241493-4 (Version None)
Quarter: 2011Q1

REPORT INFORMATION
  Report Type: 
  Country: None (occurrence: None)
  Receive Date: 20110124
  Receipt Date: 20110114
  Transmission Date: 20110831
  Serious: Yes (Hospitalization)
  Sender: FDA-Public Use
  Company Number: CH-ASTRAZENECA-2011SE03267

PATIENT
  Sex: Male

DRUGS (10)
  1. QUILONORM RETARD [Concomitant]
     Route: 048
     Dates: start: 20100628, end: 20100709
  2. QUILONORM RETARD [Concomitant]
     Route: 048
     Dates: start: 20100811
  3. LYRICA [Concomitant]
     Route: 048
     Dates: start: 20100709
  4. SEROQUEL XR [Suspect]
     Route: 048
     Dates: start: 20100709
  5. LYRICA [Concomitant]
     Route: 048
     Dates: start: 20100623, end: 20100629
  6. LYRICA [Concomitant]
     Route: 048
     Dates: start: 20100630, end: 20100708
  7. SEROQUEL XR [Suspect]
     Route: 048
     Dates: start: 20100624, end: 20100627
  8. SEROQUEL XR [Suspect]
     Route: 048
     Dates: start: 20100623
  9. SEROQUEL XR [Suspect]
     Route: 048
     Dates: start: 20100628, end: 20100708
  10. QUILONORM RETARD [Concomitant]
     Dosage: 225-450 MG
     Route: 048
     Dates: start: 20100623, end: 20100627

REACTIONS (4)
  - ACNE PUSTULAR [None]
  - ASOCIAL BEHAVIOUR [None]
  - WEIGHT INCREASED [None]
  - HYPOTHYROIDISM [None]
